FAERS Safety Report 26110633 (Version 1)
Quarter: 2025Q4

REPORT INFORMATION
  Report Type: Spontaneous
  Country: US (occurrence: US)
  Receive Date: 20251202
  Receipt Date: 20251202
  Transmission Date: 20260118
  Serious: No
  Sender: ABBVIE
  Company Number: US-ABBVIE-6571734

PATIENT
  Age: 82 Year
  Sex: Female

DRUGS (1)
  1. FML FORTE [Suspect]
     Active Substance: FLUOROMETHOLONE
     Indication: Product used for unknown indication
     Dosage: LEFT EYE
     Route: 047

REACTIONS (4)
  - Dizziness [Unknown]
  - Vision blurred [Unknown]
  - Nausea [Unknown]
  - Eye pain [Unknown]

NARRATIVE: CASE EVENT DATE: 20250101
